FAERS Safety Report 13462574 (Version 2)
Quarter: 2017Q2

REPORT INFORMATION
  Report Type: Spontaneous
  Country: DE (occurrence: DE)
  Receive Date: 20170420
  Receipt Date: 20170601
  Transmission Date: 20170830
  Serious: Yes (Hospitalization)
  Sender: FDA-Public Use
  Company Number: GXKR2017DE002265

PATIENT

DRUGS (6)
  1. DIMENHYDRINAT [Concomitant]
     Active Substance: DIMENHYDRINATE
     Indication: VOMITING
     Dosage: 1 DF, QD
     Route: 054
     Dates: start: 20170402, end: 20170405
  2. IBUPROFEN. [Concomitant]
     Active Substance: IBUPROFEN
     Indication: PYREXIA
     Dosage: 1 DF, UNK
     Route: 048
     Dates: start: 20170327
  3. ROXITHROMYCIN [Interacting]
     Active Substance: ROXITHROMYCIN
     Indication: RESPIRATORY TRACT INFECTION
     Dosage: 100 MG, TWICE DAILY
     Route: 048
     Dates: start: 20170403, end: 20170406
  4. AMPICILLIN ^COX^ [Concomitant]
     Indication: ANTIBIOTIC THERAPY
  5. VOTUBIA [Suspect]
     Active Substance: EVEROLIMUS
     Indication: TUBEROUS SCLEROSIS
     Dosage: 7.5 MG, ONCE DAILY
     Route: 048
     Dates: start: 201405
  6. PARACETAMOL [Concomitant]
     Active Substance: ACETAMINOPHEN
     Indication: PYREXIA
     Dosage: 250 MG, UNK
     Route: 054
     Dates: start: 20170327, end: 20170407

REACTIONS (2)
  - Drug level increased [Recovering/Resolving]
  - Drug interaction [Not Recovered/Not Resolved]

NARRATIVE: CASE EVENT DATE: 20170407
